FAERS Safety Report 19487768 (Version 3)
Quarter: 2021Q3

REPORT INFORMATION
  Report Type: Report from Study
  Country: TW (occurrence: TW)
  Receive Date: 20210702
  Receipt Date: 20210824
  Transmission Date: 20211014
  Serious: Yes (Other)
  Sender: FDA-Public Use
  Company Number: TW-BAYER-2021-159023

PATIENT
  Age: 67 Year
  Sex: Male

DRUGS (3)
  1. VENTAVIS [Suspect]
     Active Substance: ILOPROST
     Indication: PULMONARY ARTERIAL HYPERTENSION
     Dosage: 20 ?G, PRN
     Route: 055
     Dates: start: 202006
  2. ADEMPAS [Suspect]
     Active Substance: RIOCIGUAT
     Indication: PULMONARY ARTERIAL HYPERTENSION
     Dosage: 0.5 DF, BID
     Route: 048
     Dates: start: 20210628, end: 20210703
  3. ADEMPAS [Suspect]
     Active Substance: RIOCIGUAT
     Indication: PULMONARY ARTERIAL HYPERTENSION
     Dosage: 0.5 DF, TID
     Route: 048
     Dates: start: 20210531, end: 202106

REACTIONS (6)
  - Dizziness [Recovered/Resolved]
  - Wrong technique in product usage process [None]
  - Fatigue [Recovered/Resolved]
  - Visual impairment [Recovered/Resolved]
  - Dyspnoea exertional [Recovered/Resolved]
  - Product prescribing issue [None]

NARRATIVE: CASE EVENT DATE: 20210531
